FAERS Safety Report 6865422-8 (Version None)
Quarter: 2010Q3

REPORT INFORMATION
  Report Type: 
  Country: None (occurrence: None)
  Receive Date: 20100721
  Receipt Date: 20080822
  Transmission Date: 20110219
  Serious: No
  Sender: FDA-Public Use
  Company Number: US-PFIZER INC-2008032288

PATIENT
  Sex: Female
  Weight: 59.1 kg

DRUGS (5)
  1. CHANTIX [Suspect]
     Indication: SMOKING CESSATION THERAPY
     Route: 048
     Dates: start: 20080404
  2. LEXAPRO [Concomitant]
     Indication: BIPOLAR DISORDER
  3. DEPAKOTE [Concomitant]
     Indication: BIPOLAR DISORDER
  4. SEROQUEL [Concomitant]
     Indication: BIPOLAR DISORDER
  5. CALCIUM WITH VITAMIN D [Concomitant]

REACTIONS (4)
  - FEAR [None]
  - MALAISE [None]
  - MOOD SWINGS [None]
  - PANIC REACTION [None]
